FAERS Safety Report 20759668 (Version 1)
Quarter: 2022Q2

REPORT INFORMATION
  Report Type: Report from Study
  Country: US (occurrence: US)
  Receive Date: 20220427
  Receipt Date: 20220427
  Transmission Date: 20220721
  Serious: Yes (Other)
  Sender: FDA-Public Use
  Company Number: US-JAZZ-2016-US-024308

PATIENT
  Sex: Female

DRUGS (20)
  1. XYREM [Suspect]
     Active Substance: SODIUM OXYBATE
     Indication: Narcolepsy
     Dosage: 3 G, BID
     Route: 048
     Dates: start: 201311, end: 2013
  2. XYREM [Suspect]
     Active Substance: SODIUM OXYBATE
     Dosage: DOSE ADJUSTMENT
     Route: 048
     Dates: start: 201312, end: 2013
  3. XYREM [Suspect]
     Active Substance: SODIUM OXYBATE
     Dosage: 4.5 G, BID
     Route: 048
     Dates: start: 2013
  4. TRAMADOL HCL [Concomitant]
     Active Substance: TRAMADOL HYDROCHLORIDE
  5. MIMVEY [Concomitant]
     Active Substance: ESTRADIOL\NORETHINDRONE ACETATE
  6. HUMALOG [Concomitant]
     Active Substance: INSULIN LISPRO
  7. HYDROXYZINE HYDROCHLORIDE [Concomitant]
     Active Substance: HYDROXYZINE HYDROCHLORIDE
  8. ITRACONAZOLE [Concomitant]
     Active Substance: ITRACONAZOLE
  9. INVOKANA [Concomitant]
     Active Substance: CANAGLIFLOZIN
  10. CONCERTA [Concomitant]
     Active Substance: METHYLPHENIDATE HYDROCHLORIDE
  11. ACTIVELLA [Concomitant]
     Active Substance: ESTRADIOL\NORETHINDRONE ACETATE
  12. ADDERALL [Concomitant]
     Active Substance: AMPHETAMINE ASPARTATE\AMPHETAMINE SULFATE\DEXTROAMPHETAMINE SACCHARATE\DEXTROAMPHETAMINE SULFATE
  13. CYMBALTA [Concomitant]
     Active Substance: DULOXETINE HYDROCHLORIDE
  14. INDERAL [Concomitant]
     Active Substance: PROPRANOLOL HYDROCHLORIDE
  15. LIBRAX                             /00033301/ [Concomitant]
  16. HYDROCHLOROTHIAZIDE\LISINOPRIL [Concomitant]
     Active Substance: HYDROCHLOROTHIAZIDE\LISINOPRIL
  17. NOVOLOG [Concomitant]
     Active Substance: INSULIN ASPART
  18. ULTRAM [Concomitant]
     Active Substance: TRAMADOL HYDROCHLORIDE
  19. NUVIGIL [Concomitant]
     Active Substance: ARMODAFINIL
  20. CYCLOBENZAPRINE [Concomitant]
     Active Substance: CYCLOBENZAPRINE

REACTIONS (3)
  - Neuropathy peripheral [Recovered/Resolved]
  - Insomnia [Unknown]
  - Migraine [Recovered/Resolved]
